FAERS Safety Report 20177073 (Version 1)
Quarter: 2021Q4

REPORT INFORMATION
  Report Type: Spontaneous
  Country: US (occurrence: US)
  Receive Date: 20211213
  Receipt Date: 20211213
  Transmission Date: 20220303
  Serious: No
  Sender: FDA-Public Use
  Company Number: US-KYOWAKIRIN-2021BKK020499

PATIENT

DRUGS (14)
  1. POTELIGEO [Suspect]
     Active Substance: MOGAMULIZUMAB-KPKC
     Indication: Cutaneous T-cell lymphoma
     Dosage: 1 MG/KG, EVERY OTHER WEEK
     Route: 042
     Dates: start: 20210916, end: 202110
  2. POTELIGEO [Suspect]
     Active Substance: MOGAMULIZUMAB-KPKC
     Dosage: 1 MG/KG, 1X/2 WEEKS
     Route: 042
     Dates: start: 2021
  3. ANASTROZOLE [Concomitant]
     Active Substance: ANASTROZOLE
     Indication: Breast cancer
     Dosage: 1 MG
     Route: 048
     Dates: start: 20170516
  4. ATENOLOL [Concomitant]
     Active Substance: ATENOLOL
     Indication: Atrial fibrillation
     Dosage: 25 MG, DAILY
     Route: 048
     Dates: start: 2019
  5. CERAVE ITCH RELIEF MOISTURIZING [Concomitant]
     Active Substance: PRAMOXINE HYDROCHLORIDE
     Indication: Cutaneous T-cell lymphoma
     Dosage: APPLY TO AFFECTED AREAS, QID
     Route: 061
     Dates: start: 202101
  6. ELIQUIS [Concomitant]
     Active Substance: APIXABAN
     Indication: Atrial fibrillation
     Dosage: 5 MG, BID
     Route: 048
     Dates: start: 2019
  7. LEVOTHYROXINE [Concomitant]
     Active Substance: LEVOTHYROXINE
     Indication: Hypothyroidism
     Dosage: 50 MCH
     Route: 048
     Dates: start: 2017
  8. MELATONIN [Concomitant]
     Active Substance: MELATONIN
     Indication: Insomnia
     Dosage: 3 MG, PRN, ONCE NIGHTLY
     Route: 048
     Dates: start: 20160308
  9. OXYCODONE [Concomitant]
     Active Substance: OXYCODONE
     Indication: Glossodynia
     Dosage: 5 MG, Q6H, PRN
     Route: 048
     Dates: start: 201703
  10. PREDNISONE [Concomitant]
     Active Substance: PREDNISONE
     Indication: Cutaneous T-cell lymphoma
     Dosage: 10 MG DAILY
     Route: 048
     Dates: start: 20200728
  11. VENTOLIN HFA [Concomitant]
     Active Substance: ALBUTEROL SULFATE
     Indication: Chronic obstructive pulmonary disease
     Dosage: 2 PUFFS, Q4H, PRN SOB
     Route: 065
     Dates: start: 2017
  12. VITAMIN D NOS [Concomitant]
     Active Substance: VITAMIN D NOS
     Indication: Osteopenia
     Dosage: 50000 IU, ONCE WEEKLY
     Route: 048
     Dates: start: 20161011
  13. BETAMETHASONE DIPROPIONATE [Concomitant]
     Active Substance: BETAMETHASONE DIPROPIONATE
     Indication: Cutaneous T-cell lymphoma
     Dosage: TO AFFECTED AREA, TWICE A DAY
     Route: 065
     Dates: start: 20210709
  14. GABAPENTIN [Concomitant]
     Active Substance: GABAPENTIN
     Indication: Pruritus
     Dosage: 300 MG, BID
     Route: 048

REACTIONS (2)
  - Alanine aminotransferase increased [Recovered/Resolved]
  - Aspartate aminotransferase increased [Recovered/Resolved]

NARRATIVE: CASE EVENT DATE: 20211028
